FAERS Safety Report 15937473 (Version 1)
Quarter: 2019Q1

REPORT INFORMATION
  Report Type: Spontaneous
  Country: US (occurrence: US)
  Receive Date: 20190118
  Receipt Date: 20190118
  Transmission Date: 20190417
  Serious: Yes (Hospitalization, Other)
  Sender: FDA-Public Use
  Company Number: None

PATIENT
  Age: 62 Year
  Sex: Female
  Weight: 88.45 kg

DRUGS (5)
  1. TAMSULOSIN [Suspect]
     Active Substance: TAMSULOSIN
     Indication: NEPHROLITHIASIS
     Dosage: ?          QUANTITY:6 PILLS;?
     Route: 048
     Dates: start: 20180205, end: 20180208
  2. LOSARTAN. [Concomitant]
     Active Substance: LOSARTAN
  3. VICTOZA [Concomitant]
     Active Substance: LIRAGLUTIDE
  4. GLIPIZIDE. [Concomitant]
     Active Substance: GLIPIZIDE
  5. CHOLESTEROL MEDICINE [Concomitant]
     Active Substance: UNSPECIFIED INGREDIENT

REACTIONS (9)
  - Neck pain [None]
  - Eye pain [None]
  - Cerebrovascular accident [None]
  - Product use in unapproved indication [None]
  - Nephrolithiasis [None]
  - Headache [None]
  - Epistaxis [None]
  - Liver injury [None]
  - Rhinorrhoea [None]

NARRATIVE: CASE EVENT DATE: 20180212
